FAERS Safety Report 18103254 (Version 1)
Quarter: 2020Q3

REPORT INFORMATION
  Report Type: Spontaneous
  Country: US (occurrence: US)
  Receive Date: 20200731
  Receipt Date: 20200731
  Transmission Date: 20201103
  Serious: Yes (Life-Threatening)
  Sender: FDA-Public Use
  Company Number: None

PATIENT
  Age: 57 Year
  Sex: Female

DRUGS (1)
  1. TOPICAL LIDOCAINE [Suspect]
     Active Substance: LIDOCAINE

REACTIONS (4)
  - Adverse drug reaction [None]
  - Acute respiratory failure [None]
  - Methaemoglobinaemia [None]
  - Fluid overload [None]

NARRATIVE: CASE EVENT DATE: 20200611
